FAERS Safety Report 4572402-4 (Version None)
Quarter: 2005Q1

REPORT INFORMATION
  Report Type: 
  Country: None (occurrence: None)
  Receive Date: 20050207
  Receipt Date: 20050125
  Transmission Date: 20050727
  Serious: Yes (Other)
  Sender: FDA-Public Use
  Company Number: DK-NOVOPROD-241854

PATIENT
  Sex: Male

DRUGS (6)
  1. NOVOLIN N [Suspect]
     Indication: DIABETES MELLITUS INSULIN-DEPENDENT
     Dosage: 48 IU, QD
     Route: 015
     Dates: start: 20040701
  2. INSULATARD NPH HUMAN [Concomitant]
     Indication: DIABETES MELLITUS INSULIN-DEPENDENT
     Dosage: 46 IU, QD
     Route: 015
     Dates: start: 20040701
  3. VITAMINS NOS [Concomitant]
     Route: 015
     Dates: start: 20040629, end: 20041104
  4. VITAMIN CAP [Concomitant]
     Route: 015
     Dates: start: 20041105
  5. CALCIUM                                 /N/A/ [Concomitant]
     Route: 015
     Dates: start: 20040806
  6. IRON [Concomitant]
     Route: 015
     Dates: start: 20040917

REACTIONS (2)
  - DRUG EXPOSURE DURING PREGNANCY [None]
  - HYPOGLYCAEMIA NEONATAL [None]
